FAERS Safety Report 9765211 (Version 1)
Quarter: 2013Q4

REPORT INFORMATION
  Report Type: Spontaneous
  Country: US (occurrence: US)
  Receive Date: 20131217
  Receipt Date: 20131217
  Transmission Date: 20140711
  Serious: No
  Sender: FDA-Public Use
  Company Number: US-GLAXOSMITHKLINE-A1002514A

PATIENT
  Age: 47 Year
  Sex: Female

DRUGS (4)
  1. VOTRIENT [Suspect]
     Indication: SOFT TISSUE CANCER
     Dosage: 800MG PER DAY
     Route: 048
     Dates: start: 20120602
  2. CALCIUM [Concomitant]
  3. SENOKOT S [Concomitant]
  4. POLYSPORIN [Concomitant]

REACTIONS (5)
  - Pain [Unknown]
  - Sinus headache [Unknown]
  - Tinnitus [Unknown]
  - Sinus congestion [Unknown]
  - Eye disorder [Not Recovered/Not Resolved]
